FAERS Safety Report 7769059-8 (Version None)
Quarter: 2011Q3

REPORT INFORMATION
  Report Type: 
  Country: None (occurrence: None)
  Receive Date: 20110922
  Receipt Date: 20100527
  Transmission Date: 20111222
  Serious: No
  Sender: FDA-Public Use
  Company Number: US-ASTRAZENECA-2008UW19825

PATIENT
  Age: 467 Month
  Sex: Female

DRUGS (7)
  1. SEROQUEL [Suspect]
     Route: 048
     Dates: start: 20080903
  2. ZOLOFT [Concomitant]
     Dates: start: 20060926
  3. ZYPREXA [Concomitant]
     Indication: NERVOUSNESS
     Dates: start: 20041027
  4. PROTONIX [Concomitant]
     Indication: GASTROOESOPHAGEAL REFLUX DISEASE
     Dates: start: 20080901
  5. EFFEXOR [Concomitant]
     Indication: NERVOUSNESS
     Dates: start: 20041027
  6. SEROQUEL [Suspect]
     Indication: DEPRESSION
     Dosage: 200 TO 300 MG AT NIGHT
     Route: 048
     Dates: start: 20060926
  7. ZIAC [Concomitant]
     Indication: HYPERTENSION
     Dosage: 10-6.25 DAILY
     Dates: start: 20040519

REACTIONS (2)
  - TYPE 2 DIABETES MELLITUS [None]
  - METABOLIC SYNDROME [None]
